FAERS Safety Report 23738980 (Version 3)
Quarter: 2024Q2

REPORT INFORMATION
  Report Type: Spontaneous
  Country: US (occurrence: US)
  Receive Date: 20240413
  Receipt Date: 20240507
  Transmission Date: 20240715
  Serious: No
  Sender: FDA-Public Use
  Company Number: US-ABBVIE-5716885

PATIENT

DRUGS (2)
  1. RESTASIS [Suspect]
     Active Substance: CYCLOSPORINE
     Indication: Product used for unknown indication
     Dosage: FORM STRENGTH: CYCLOSPORINE 0.5MG/ML
     Route: 047
  2. RESTASIS [Suspect]
     Active Substance: CYCLOSPORINE
     Dosage: FORM STRENGTH: CYCLOSPORINE 0.5MG/ML
     Route: 047
     Dates: start: 201611

REACTIONS (3)
  - Eye disorder [Unknown]
  - Therapeutic product effect incomplete [Unknown]
  - Dry eye [Unknown]
